FAERS Safety Report 4333101-7 (Version None)
Quarter: 2004Q2

REPORT INFORMATION
  Report Type: 
  Country: None (occurrence: None)
  Receive Date: 20040402
  Receipt Date: 20040322
  Transmission Date: 20050107
  Serious: Yes (Hospitalization)
  Sender: FDA-Public Use
  Company Number: 2003-DE-03433UP

PATIENT
  Age: 69 Year
  Sex: Male

DRUGS (10)
  1. MIRAPEX [Suspect]
     Indication: PARKINSON'S DISEASE
     Dosage: PO; 2.25 MG (0.25 MG, 3 IN 1 D); 3 MG (0.25 MG, 3 IN 1 D)
     Route: 048
     Dates: start: 20030325, end: 20030605
  2. MIRAPEX [Suspect]
     Indication: PARKINSON'S DISEASE
     Dosage: PO; 2.25 MG (0.25 MG, 3 IN 1 D); 3 MG (0.25 MG, 3 IN 1 D)
     Route: 048
     Dates: start: 20030606, end: 20030723
  3. MIRAPEX [Suspect]
     Indication: PARKINSON'S DISEASE
     Dosage: PO; 2.25 MG (0.25 MG, 3 IN 1 D); 3 MG (0.25 MG, 3 IN 1 D)
     Route: 048
     Dates: start: 20021213
  4. ASTONIN-H (FLUDROCORTISONE) [Concomitant]
  5. DITROPAN [Concomitant]
  6. MOTILLIUM (DOMPERIDONE) [Concomitant]
  7. THEOPHYLLINE [Concomitant]
  8. TAMSULOSIN [Concomitant]
  9. MADOPAR (MADOPAR) [Concomitant]
  10. SINEMET (SINEMET/NET) [Concomitant]

REACTIONS (6)
  - AUTOIMMUNE DISORDER [None]
  - HAEMOGLOBIN DECREASED [None]
  - LYMPHOCYTE COUNT DECREASED [None]
  - NEUTROPHIL COUNT INCREASED [None]
  - PEMPHIGOID [None]
  - WHITE BLOOD CELL COUNT INCREASED [None]
